FAERS Safety Report 14587300 (Version 1)
Quarter: 2018Q1

REPORT INFORMATION
  Report Type: Spontaneous
  Country: US (occurrence: US)
  Receive Date: 20180228
  Receipt Date: 20180228
  Transmission Date: 20180509
  Serious: No
  Sender: FDA-Public Use
  Company Number: None

PATIENT
  Age: 7 Year
  Sex: Male
  Weight: 22.95 kg

DRUGS (3)
  1. CHILDREN^S ACETAMINOPHEN [Concomitant]
     Active Substance: ACETAMINOPHEN
  2. IBUPROFEN. [Concomitant]
     Active Substance: IBUPROFEN
  3. OSTELTAMIVIR PHOSPHATE FOR ORAL SUSPENSION [Suspect]
     Active Substance: OSELTAMIVIR PHOSPHATE
     Indication: INFLUENZA
     Dosage: QUANTITY:2 TEASPOON(S);?
     Route: 048
     Dates: start: 20180226

REACTIONS (6)
  - Pyrexia [None]
  - Pain [None]
  - Screaming [None]
  - Nightmare [None]
  - Crying [None]
  - Abnormal behaviour [None]

NARRATIVE: CASE EVENT DATE: 20180228
